FAERS Safety Report 7639190-6 (Version None)
Quarter: 2011Q3

REPORT INFORMATION
  Report Type: 
  Country: None (occurrence: None)
  Receive Date: 20110725
  Receipt Date: 20110725
  Transmission Date: 20111222
  Serious: No
  Sender: FDA-Public Use
  Company Number: None

PATIENT
  Age: 66 Year
  Sex: Male
  Weight: 77.7 kg

DRUGS (1)
  1. ABIRATERONE [Suspect]
     Indication: PROSTATE CANCER
     Dosage: 1000 EVERY DAY PO
     Route: 048
     Dates: start: 20110607

REACTIONS (1)
  - OEDEMA PERIPHERAL [None]
